FAERS Safety Report 16312644 (Version 1)
Quarter: 2019Q2

REPORT INFORMATION
  Report Type: Spontaneous
  Country: US (occurrence: US)
  Receive Date: 20190515
  Receipt Date: 20190515
  Transmission Date: 20190711
  Serious: No
  Sender: FDA-Public Use
  Company Number: US-MALLINCKRODT-T201805140

PATIENT
  Sex: Female
  Weight: 49 kg

DRUGS (2)
  1. METHADONE [Suspect]
     Active Substance: METHADONE HYDROCHLORIDE
     Indication: ARTHRALGIA
     Dosage: 5 MG, THREE TWICE DAILY
     Route: 048
  2. BENADRYL [Concomitant]
     Active Substance: DIPHENHYDRAMINE HYDROCHLORIDE
     Indication: PRODUCT USED FOR UNKNOWN INDICATION

REACTIONS (9)
  - Nausea [Recovering/Resolving]
  - Insomnia [Unknown]
  - Pruritus [Recovering/Resolving]
  - Dysstasia [Unknown]
  - Scratch [Unknown]
  - Dizziness [Unknown]
  - Vomiting [Recovered/Resolved]
  - Rash [Recovering/Resolving]
  - Product quality issue [Unknown]
